FAERS Safety Report 9800073 (Version 1)
Quarter: 2014Q1

REPORT INFORMATION
  Report Type: Spontaneous
  Country: US (occurrence: US)
  Receive Date: 20140106
  Receipt Date: 20140106
  Transmission Date: 20141002
  Serious: No
  Sender: FDA-Public Use
  Company Number: US-GILEAD-2010-0032174

PATIENT
  Age: 68 Year
  Sex: Female
  Weight: 87.54 kg

DRUGS (18)
  1. LETAIRIS [Suspect]
     Indication: PULMONARY ARTERIAL HYPERTENSION
     Route: 048
     Dates: start: 20100908
  2. KAPIDEX DR [Concomitant]
  3. OXYGEN [Concomitant]
  4. CYMBALTA [Concomitant]
  5. FUROSEMIDE [Concomitant]
  6. SINGULAIR [Concomitant]
  7. ZOCOR [Concomitant]
  8. DETROL LA [Concomitant]
  9. ALTACE [Concomitant]
  10. METOPROLOL [Concomitant]
  11. ALBUTEROL [Concomitant]
  12. FERROUS SULFATE [Concomitant]
  13. OXYCODONE HCL [Concomitant]
  14. CALCIUM +D [Concomitant]
  15. VITAMIN C [Concomitant]
  16. OXYCONTIN [Concomitant]
  17. KRISTALOSE [Concomitant]
  18. POTASSIUM CHLORIDE [Concomitant]

REACTIONS (1)
  - Local swelling [Unknown]
